FAERS Safety Report 9331634 (Version 2)
Quarter: 2013Q3

REPORT INFORMATION
  Report Type: Spontaneous
  Country: DE (occurrence: DE)
  Receive Date: 20130605
  Receipt Date: 20130814
  Transmission Date: 20140515
  Serious: Yes (Other)
  Sender: FDA-Public Use
  Company Number: DE-BRISTOL-MYERS SQUIBB COMPANY-18895144

PATIENT
  Age: 81 Year
  Sex: Female
  Weight: 56 kg

DRUGS (2)
  1. LITALIR CAPS [Suspect]
     Indication: ESSENTIAL THROMBOCYTHAEMIA
     Dosage: CAPSULES FOR 11 YEARS ?DOSE REGIMEN: 1CAP ON 1+2 DAY?2CAPSULE ON 3DAY.1-1-2
     Dates: start: 2002
  2. ASS [Concomitant]

REACTIONS (4)
  - Macular degeneration [Unknown]
  - Eye irritation [Not Recovered/Not Resolved]
  - Dizziness [Not Recovered/Not Resolved]
  - Cataract [Unknown]
